FAERS Safety Report 24194210 (Version 3)
Quarter: 2024Q3

REPORT INFORMATION
  Report Type: Report from Study
  Country: JP (occurrence: JP)
  Receive Date: 20240809
  Receipt Date: 20240912
  Transmission Date: 20241016
  Serious: Yes (Death, Other)
  Sender: ABBVIE
  Company Number: JP-JNJFOC-20240818547

PATIENT
  Age: 61 Year
  Sex: Male

DRUGS (15)
  1. IMBRUVICA [Suspect]
     Active Substance: IBRUTINIB
     Indication: Lymphoplasmacytoid lymphoma/immunocytoma
     Route: 048
     Dates: start: 20240409
  2. PREDONINE [Concomitant]
     Active Substance: PREDNISOLONE
     Indication: Eczema herpeticum
     Route: 048
     Dates: start: 20240628
  3. PREDONINE [Concomitant]
     Active Substance: PREDNISOLONE
     Indication: Eczema herpeticum
     Route: 048
     Dates: start: 20240508, end: 20240511
  4. PREDONINE [Concomitant]
     Active Substance: PREDNISOLONE
     Indication: Eczema herpeticum
     Route: 048
     Dates: start: 20240512, end: 20240527
  5. PREDONINE [Concomitant]
     Active Substance: PREDNISOLONE
     Indication: Eczema herpeticum
     Route: 048
     Dates: start: 20240501, end: 20240507
  6. PREDONINE [Concomitant]
     Active Substance: PREDNISOLONE
     Indication: Eczema herpeticum
     Route: 048
     Dates: start: 20240528, end: 20240627
  7. LANSOPRAZOLE [Concomitant]
     Active Substance: LANSOPRAZOLE
     Indication: Prophylaxis
     Route: 048
     Dates: start: 20240529
  8. VALACYCLOVIR HYDROCHLORIDE [Concomitant]
     Active Substance: VALACYCLOVIR HYDROCHLORIDE
     Indication: Eczema herpeticum
     Route: 048
     Dates: start: 20240501, end: 20240507
  9. VALACYCLOVIR HYDROCHLORIDE [Concomitant]
     Active Substance: VALACYCLOVIR HYDROCHLORIDE
     Indication: Eczema herpeticum
     Route: 048
     Dates: start: 20240424, end: 20240430
  10. CLOBETASOL [Concomitant]
     Active Substance: CLOBETASOL
     Indication: Neurodermatitis
     Dosage: Q.S.
     Route: 061
     Dates: start: 20240501
  11. OLOPATADINE HYDROCHLORIDE [Concomitant]
     Active Substance: OLOPATADINE HYDROCHLORIDE
     Indication: Neurodermatitis
     Route: 048
     Dates: start: 20240528
  12. RITUXIMAB [Concomitant]
     Active Substance: RITUXIMAB
     Indication: Lymphoplasmacytoid lymphoma/immunocytoma
     Dates: start: 20240424, end: 20240424
  13. RITUXIMAB [Concomitant]
     Active Substance: RITUXIMAB
     Indication: Lymphoplasmacytoid lymphoma/immunocytoma
     Dates: start: 20240502, end: 20240502
  14. RITUXIMAB [Concomitant]
     Active Substance: RITUXIMAB
     Indication: Lymphoplasmacytoid lymphoma/immunocytoma
     Dates: start: 20240410, end: 20240410
  15. RITUXIMAB [Concomitant]
     Active Substance: RITUXIMAB
     Indication: Lymphoplasmacytoid lymphoma/immunocytoma
     Dates: start: 20240418, end: 20240418

REACTIONS (2)
  - Death [Fatal]
  - Eczema herpeticum [Recovered/Resolved]

NARRATIVE: CASE EVENT DATE: 20240424
